FAERS Safety Report 4579180-3 (Version None)
Quarter: 2005Q1

REPORT INFORMATION
  Report Type: 
  Country: None (occurrence: None)
  Receive Date: 20050208
  Receipt Date: 20050208
  Transmission Date: 20050727
  Serious: No
  Sender: FDA-Public Use
  Company Number: None

PATIENT
  Sex: Female
  Weight: 79.3795 kg

DRUGS (1)
  1. LAMOTRIGINE [Suspect]
     Indication: EPILEPSY
     Dosage: 50MG   QAM   ORAL; 75MG  QPM  ORAL
     Route: 048
     Dates: start: 20040427, end: 20050207

REACTIONS (1)
  - DENTAL CARIES [None]
